FAERS Safety Report 9113704 (Version 2)
Quarter: 2013Q2

REPORT INFORMATION
  Report Type: Spontaneous
  Country: US (occurrence: US)
  Receive Date: 20130129
  Receipt Date: 20130403
  Transmission Date: 20140414
  Serious: No
  Sender: FDA-Public Use
  Company Number: US-009507513-1301USA006669

PATIENT
  Age: 63 Year
  Sex: Female

DRUGS (2)
  1. SAPHRIS [Suspect]
     Indication: BIPOLAR DISORDER
     Dosage: 10MG, HS, TOTAL DAILY DOSE 15MG
     Route: 060
     Dates: start: 20121213, end: 20121220
  2. SAPHRIS [Suspect]
     Dosage: 5 MG, UNK
     Route: 048
     Dates: start: 20121220, end: 20121225

REACTIONS (3)
  - Tongue ulceration [Recovered/Resolved]
  - Mouth ulceration [Unknown]
  - Tongue ulceration [Unknown]
